FAERS Safety Report 14441892 (Version 2)
Quarter: 2018Q1

REPORT INFORMATION
  Report Type: Spontaneous
  Country: GB (occurrence: IT)
  Receive Date: 20180125
  Receipt Date: 20180215
  Transmission Date: 20180509
  Serious: Yes (Hospitalization)
  Sender: FDA-Public Use
  Company Number: GB-MYLANLABS-2018M1005277

PATIENT
  Age: 50 Year
  Sex: Female

DRUGS (3)
  1. RAMIPRIL. [Suspect]
     Active Substance: RAMIPRIL
     Indication: HYPERTENSION
     Dosage: 5 MG, UNK
     Route: 048
  2. METFORMIN [Suspect]
     Active Substance: METFORMIN HYDROCHLORIDE
     Indication: DIABETES MELLITUS
     Dosage: UNK
     Route: 048
  3. ACETYLSALICYLIC ACID [Suspect]
     Active Substance: ASPIRIN
     Indication: VENTRICULAR FIBRILLATION
     Dosage: UNK
     Route: 065

REACTIONS (2)
  - Basilar artery thrombosis [Recovered/Resolved]
  - Hemiplegia [Recovered/Resolved]
